FAERS Safety Report 24560582 (Version 1)
Quarter: 2024Q4

REPORT INFORMATION
  Report Type: Spontaneous
  Country: MX (occurrence: MX)
  Receive Date: 20241029
  Receipt Date: 20241029
  Transmission Date: 20250114
  Serious: Yes (Other)
  Sender: ELI LILLY AND COMPANY
  Company Number: MX-ELI_LILLY_AND_COMPANY-MX202410013536

PATIENT
  Age: 55 Year
  Sex: Female

DRUGS (2)
  1. VERZENIO [Suspect]
     Active Substance: ABEMACICLIB
     Indication: Invasive ductal breast carcinoma
     Dosage: 150 MG, BID
     Route: 065
     Dates: start: 202407
  2. LETROZOLE [Concomitant]
     Active Substance: LETROZOLE
     Indication: Product used for unknown indication

REACTIONS (10)
  - Bronchiectasis [Unknown]
  - Interstitial lung disease [Unknown]
  - Arthralgia [Unknown]
  - Oxygen saturation decreased [Unknown]
  - Wheezing [Unknown]
  - Lung opacity [Recovering/Resolving]
  - C-reactive protein increased [Unknown]
  - Procalcitonin increased [Unknown]
  - Asthenia [Unknown]
  - Diarrhoea [Unknown]

NARRATIVE: CASE EVENT DATE: 20240801
